FAERS Safety Report 18810203 (Version 1)
Quarter: 2021Q1

REPORT INFORMATION
  Report Type: Spontaneous
  Country: FR (occurrence: FR)
  Receive Date: 20210129
  Receipt Date: 20210129
  Transmission Date: 20210419
  Serious: Yes (Hospitalization)
  Sender: FDA-Public Use
  Company Number: FR-FERRINGPH-2020FE01246

PATIENT
  Age: 34 Year
  Sex: Female
  Weight: 75 kg

DRUGS (6)
  1. MENOPUR [Suspect]
     Active Substance: FOLLITROPIN\LUTEINIZING HORMONE
     Indication: ASSISTED REPRODUCTIVE TECHNOLOGY
     Dosage: 200 IU
     Route: 058
     Dates: start: 20190829, end: 20190830
  2. DECAPEPTYL [TRIPTORELIN] [Suspect]
     Active Substance: TRIPTORELIN
     Indication: ASSISTED REPRODUCTIVE TECHNOLOGY
     Dosage: 1 DF, ONCE/SINGLE
     Route: 058
     Dates: start: 20190831
  3. MENOPUR [Suspect]
     Active Substance: FOLLITROPIN\LUTEINIZING HORMONE
     Dosage: 250 IU, DAILY
     Route: 058
     Dates: start: 20190826, end: 20190828
  4. OVITRELLE [Suspect]
     Active Substance: CHORIOGONADOTROPIN ALFA
     Indication: ASSISTED REPRODUCTIVE TECHNOLOGY
     Dosage: 1 DF, ONCE/SINGLE
     Route: 058
     Dates: start: 20190831
  5. ORGALUTRAN [Suspect]
     Active Substance: GANIRELIX ACETATE
     Indication: ASSISTED REPRODUCTIVE TECHNOLOGY
     Dosage: 1 DF, 1 TIME DAILY
     Route: 058
     Dates: start: 20190829, end: 20190830
  6. MENOPUR [Suspect]
     Active Substance: FOLLITROPIN\LUTEINIZING HORMONE
     Dosage: 200 IU, 1 TIME DAILY
     Route: 058
     Dates: start: 20190822, end: 20190825

REACTIONS (3)
  - Ascites [Unknown]
  - Haematocrit increased [Unknown]
  - Ovarian hyperstimulation syndrome [Recovered/Resolved]

NARRATIVE: CASE EVENT DATE: 20190904
